FAERS Safety Report 9816712 (Version 1)
Quarter: 2014Q1

REPORT INFORMATION
  Report Type: Spontaneous
  Country: US (occurrence: US)
  Receive Date: 20140114
  Receipt Date: 20140114
  Transmission Date: 20141002
  Serious: No
  Sender: FDA-Public Use
  Company Number: US-ENDO PHARMACEUTICALS INC.-OXYA20130001

PATIENT
  Age: 68 Year
  Sex: Female

DRUGS (2)
  1. OXYCODONE/ACETAMINOPHEN [Suspect]
     Indication: PAIN
     Dosage: 20/1300 MG
     Route: 048
     Dates: end: 201301
  2. OXYCODONE/ACETAMINOPHEN [Suspect]
     Indication: KNEE OPERATION

REACTIONS (1)
  - Drug ineffective [Recovered/Resolved]
